FAERS Safety Report 23981725 (Version 1)
Quarter: 2024Q2

REPORT INFORMATION
  Report Type: Spontaneous
  Country: CA (occurrence: None)
  Receive Date: 20240615
  Receipt Date: 20240615
  Transmission Date: 20240716
  Serious: Yes (Disabling, Other)
  Sender: FDA-Public Use
  Company Number: None

PATIENT
  Age: 19 Year
  Sex: Female
  Weight: 109 kg

DRUGS (9)
  1. LO LOESTRIN FE [Suspect]
     Active Substance: ETHINYL ESTRADIOL\NORETHINDRONE ACETATE
     Indication: Menstruation irregular
     Dosage: 1 TABLET AT BEDTIME ORAL?
     Route: 048
     Dates: start: 20211009, end: 20220206
  2. LO LOESTRIN FE [Suspect]
     Active Substance: ETHINYL ESTRADIOL\NORETHINDRONE ACETATE
     Indication: Contraception
  3. VYVANSE [Concomitant]
  4. VIIBRYD [Concomitant]
     Active Substance: VILAZODONE HYDROCHLORIDE
  5. Consetella [Concomitant]
  6. PINAVERIUM [Concomitant]
  7. SYMBICORT [Concomitant]
     Active Substance: BUDESONIDE\FORMOTEROL FUMARATE DIHYDRATE
  8. Vitamin D12 [Concomitant]
  9. VITAMIN B12 [Concomitant]
     Active Substance: CYANOCOBALAMIN

REACTIONS (6)
  - Vulvovaginal pain [None]
  - Impaired work ability [None]
  - Mental disorder [None]
  - Depression [None]
  - Hormone level abnormal [None]
  - Quality of life decreased [None]

NARRATIVE: CASE EVENT DATE: 20211009
